FAERS Safety Report 15230292 (Version 1)
Quarter: 2018Q3

REPORT INFORMATION
  Report Type: Spontaneous
  Country: US (occurrence: US)
  Receive Date: 20180802
  Receipt Date: 20180802
  Transmission Date: 20181010
  Serious: Yes (Other)
  Sender: FDA-Public Use
  Company Number: US-ACCORD-067878

PATIENT
  Age: 45 Year
  Sex: Female

DRUGS (9)
  1. DOCETAXEL ACCORD [Suspect]
     Active Substance: DOCETAXEL
     Indication: BREAST CANCER
     Dates: start: 20130409, end: 20130726
  2. PARAPLATIN [Suspect]
     Active Substance: CARBOPLATIN
     Indication: BREAST CANCER
  3. ATENOLOL/ATENOLOL HYDROCHLORIDE [Concomitant]
     Dates: start: 2005, end: 2013
  4. OMEPRAZOLE. [Concomitant]
     Active Substance: OMEPRAZOLE
     Dates: start: 2000, end: 2016
  5. TAMOXIFEN [Concomitant]
     Active Substance: TAMOXIFEN
     Dates: start: 2013
  6. BIOTIN [Concomitant]
     Active Substance: BIOTIN
  7. CARVEDILOL/CARVEDILOL HYDROCHLODRIDE [Concomitant]
  8. LISINOPRIL. [Concomitant]
     Active Substance: LISINOPRIL
  9. HERCEPTIN [Suspect]
     Active Substance: TRASTUZUMAB
     Indication: BREAST CANCER

REACTIONS (1)
  - Alopecia [Not Recovered/Not Resolved]

NARRATIVE: CASE EVENT DATE: 20140126
